FAERS Safety Report 8886429 (Version 3)
Quarter: 2012Q4

REPORT INFORMATION
  Report Type: 
  Country: US (occurrence: US)
  Receive Date: 20121105
  Receipt Date: 20121212
  Transmission Date: 20130627
  Serious: No
  Sender: FDA-Public Use
  Company Number: US-PFIZER INC-2012274934

PATIENT
  Age: 39 Year
  Sex: Male
  Weight: 81.6 kg

DRUGS (2)
  1. ADVIL [Suspect]
     Indication: TOOTHACHE
     Dosage: UNK, as needed
     Route: 048
     Dates: start: 201209, end: 201209
  2. CLARITIN [Concomitant]
     Indication: COLD
     Dosage: UNK

REACTIONS (3)
  - Drug ineffective [Unknown]
  - Nasopharyngitis [Not Recovered/Not Resolved]
  - Malaise [Not Recovered/Not Resolved]
